FAERS Safety Report 5146110-5 (Version None)
Quarter: 2006Q4

REPORT INFORMATION
  Report Type: 
  Country: None (occurrence: None)
  Receive Date: 20061108
  Receipt Date: 20060502
  Transmission Date: 20070319
  Serious: Yes (Hospitalization)
  Sender: FDA-Public Use
  Company Number: 2006CG00777

PATIENT
  Age: 68 Year
  Sex: Female

DRUGS (5)
  1. TENORETIC 100 [Suspect]
     Dosage: 50 + 12.5 MG DAILY
     Route: 048
     Dates: start: 20051216, end: 20060215
  2. HYTACAND [Suspect]
     Route: 048
     Dates: start: 20040616, end: 20051215
  3. ARTHROTEC [Suspect]
     Indication: MUSCULOSKELETAL PAIN
     Route: 048
  4. TENORETIC 100 [Concomitant]
     Dosage: 50 + 12.5 MG
     Route: 048
     Dates: start: 19980616, end: 20040615
  5. TENORMIN [Concomitant]
     Route: 048
     Dates: end: 19980615

REACTIONS (3)
  - CARDIOMEGALY [None]
  - INTERSTITIAL LUNG DISEASE [None]
  - PULMONARY FIBROSIS [None]
